FAERS Safety Report 7931165-2 (Version None)
Quarter: 2011Q4

REPORT INFORMATION
  Report Type: 
  Country: None (occurrence: None)
  Receive Date: 20111121
  Receipt Date: 20111118
  Transmission Date: 20120403
  Serious: Yes (Life-Threatening)
  Sender: FDA-Public Use
  Company Number: DE-B.I. PHARMACEUTICALS,INC./RIDGEFIELD-2011-DE-06458DE

PATIENT
  Sex: Male

DRUGS (4)
  1. TORASEMID 10MG [Concomitant]
     Indication: CARDIAC FAILURE
     Dosage: 2 ANZ
     Route: 048
     Dates: start: 20111108, end: 20111115
  2. OMEP 40MG [Concomitant]
     Indication: GASTRITIS
     Dosage: 1 ANZ
     Route: 048
     Dates: start: 20111108, end: 20111115
  3. PRADAXA [Suspect]
     Indication: ATRIAL FIBRILLATION
     Dosage: 2 ANZ
     Route: 048
     Dates: start: 20111108, end: 20111115
  4. CITALOPRAM HYDROBROMIDE [Concomitant]
     Dosage: 1 ANZ
     Route: 048

REACTIONS (6)
  - ACTIVATED PARTIAL THROMBOPLASTIN TIME PROLONGED [None]
  - PALLOR [None]
  - GASTROINTESTINAL HAEMORRHAGE [None]
  - HAEMOGLOBIN DECREASED [None]
  - SHOCK [None]
  - MELAENA [None]
